FAERS Safety Report 6776268-3 (Version None)
Quarter: 2010Q2

REPORT INFORMATION
  Report Type: 
  Country: None (occurrence: None)
  Receive Date: 20100617
  Receipt Date: 20100614
  Transmission Date: 20101027
  Serious: Yes (Other)
  Sender: FDA-Public Use
  Company Number: CZ-AMGEN-KDC414312

PATIENT
  Sex: Female

DRUGS (1)
  1. DENOSUMAB [Suspect]
     Indication: METASTASES TO BONE
     Route: 042
     Dates: start: 20071123, end: 20100406

REACTIONS (1)
  - OSTEONECROSIS [None]
